FAERS Safety Report 20572842 (Version 5)
Quarter: 2022Q3

REPORT INFORMATION
  Report Type: Spontaneous
  Country: US (occurrence: US)
  Receive Date: 20220309
  Receipt Date: 20220715
  Transmission Date: 20221026
  Serious: No
  Sender: FDA-Public Use
  Company Number: US-PFIZER INC-202200308468

PATIENT
  Age: 52 Year
  Sex: Female

DRUGS (5)
  1. IBRANCE [Suspect]
     Active Substance: PALBOCICLIB
     Dosage: 125 MG
     Dates: start: 20220204
  2. IBRANCE [Suspect]
     Active Substance: PALBOCICLIB
     Dosage: UNK
     Dates: start: 20220211
  3. IBRANCE [Suspect]
     Active Substance: PALBOCICLIB
     Dosage: UNK
     Dates: start: 20220213
  4. IBRANCE [Suspect]
     Active Substance: PALBOCICLIB
     Dosage: UNK
     Dates: end: 20220405
  5. IBRANCE [Suspect]
     Active Substance: PALBOCICLIB
     Dosage: 100 MG

REACTIONS (15)
  - Fatigue [Recovered/Resolved]
  - Gastrooesophageal reflux disease [Recovering/Resolving]
  - Petechiae [Unknown]
  - Pruritus [Unknown]
  - Eye pruritus [Unknown]
  - Dry eye [Unknown]
  - Neutrophil count decreased [Not Recovered/Not Resolved]
  - Stomatitis [Recovered/Resolved]
  - Full blood count abnormal [Unknown]
  - Dry skin [Unknown]
  - Skin discomfort [Unknown]
  - Skin disorder [Recovered/Resolved]
  - Restlessness [Unknown]
  - Laboratory test abnormal [Unknown]
  - Red blood cell count decreased [Unknown]

NARRATIVE: CASE EVENT DATE: 20220101
